FAERS Safety Report 15326240 (Version 1)
Quarter: 2018Q3

REPORT INFORMATION
  Report Type: Spontaneous
  Country: US (occurrence: US)
  Receive Date: 20180828
  Receipt Date: 20180828
  Transmission Date: 20181010
  Serious: Yes (Life-Threatening, Hospitalization, Other)
  Sender: FDA-Public Use
  Company Number: US-PRESTIGE BRANDS -2054334

PATIENT
  Sex: Male

DRUGS (1)
  1. BC (ASPIRIN\CAFFEINE) [Suspect]
     Active Substance: ASPIRIN\CAFFEINE
     Indication: PAIN
     Route: 048
     Dates: start: 2012

REACTIONS (6)
  - Gastric haemorrhage [Recovered/Resolved]
  - Haematemesis [Recovered/Resolved]
  - Asthenia [Recovered/Resolved]
  - Inappropriate schedule of drug administration [Unknown]
  - Gastric ulcer [Recovered/Resolved]
  - Incorrect drug administration duration [Unknown]
